FAERS Safety Report 12582196 (Version 1)
Quarter: 2016Q3

REPORT INFORMATION
  Report Type: Spontaneous
  Country: US (occurrence: None)
  Receive Date: 20160721
  Receipt Date: 20160721
  Transmission Date: 20161109
  Serious: No
  Sender: FDA-Public Use
  Company Number: None

PATIENT
  Age: 80 Year
  Sex: Male
  Weight: 82.3 kg

DRUGS (1)
  1. LINEZOLID. [Suspect]
     Active Substance: LINEZOLID
     Indication: CYSTITIS
     Dosage: MG PO
     Route: 048
     Dates: start: 20160614, end: 20160623

REACTIONS (1)
  - Stomatitis [None]

NARRATIVE: CASE EVENT DATE: 20160627
